FAERS Safety Report 4374744-4 (Version None)
Quarter: 2004Q2

REPORT INFORMATION
  Report Type: 
  Country: None (occurrence: None)
  Receive Date: 20040604
  Receipt Date: 20040518
  Transmission Date: 20050107
  Serious: Yes (Other)
  Sender: FDA-Public Use
  Company Number: 8006348

PATIENT
  Age: 47 Year
  Sex: Male
  Weight: 72.27 kg

DRUGS (9)
  1. KEPPRA [Suspect]
     Indication: CONVULSION
     Dosage: 1500 MG 2/D PO
     Route: 048
     Dates: start: 20030911
  2. TOPAMAX [Suspect]
     Indication: CONVULSION
     Dosage: 200 G 2/D PO
     Route: 048
     Dates: start: 20030925, end: 20040401
  3. TEMODAR [Suspect]
     Indication: BRAIN NEOPLASM MALIGNANT
     Dosage: 200 MG
     Dates: start: 20040216
  4. TEMODAR [Suspect]
     Indication: BRAIN NEOPLASM MALIGNANT
     Dosage: 400 MG
     Dates: start: 20040316, end: 20040320
  5. PREVACID [Concomitant]
  6. IBUPROFEN [Concomitant]
  7. DOCUSATE [Concomitant]
  8. ZOFRAN [Concomitant]
  9. LORAZEPAM [Concomitant]

REACTIONS (1)
  - BONE MARROW DEPRESSION [None]
